FAERS Safety Report 16970166 (Version 5)
Quarter: 2020Q2

REPORT INFORMATION
  Report Type: Spontaneous
  Country: FR (occurrence: FR)
  Receive Date: 20191029
  Receipt Date: 20200624
  Transmission Date: 20200713
  Serious: Yes (Other)
  Sender: FDA-Public Use
  Company Number: NVSC2019FR016962

PATIENT
  Age: 12 Year
  Sex: Male
  Weight: 45 kg

DRUGS (23)
  1. RITALIN [Suspect]
     Active Substance: METHYLPHENIDATE HYDROCHLORIDE
     Dosage: 10 MG, BID
     Route: 065
     Dates: start: 20160622
  2. MELATONIN [Concomitant]
     Active Substance: MELATONIN
     Indication: PRODUCT USED FOR UNKNOWN INDICATION
     Dosage: 1 G, QD
     Route: 065
     Dates: start: 20160502
  3. MELATONIN [Concomitant]
     Active Substance: MELATONIN
     Dosage: 1 G, QD
     Route: 065
     Dates: start: 20160713
  4. MELATONIN [Concomitant]
     Active Substance: MELATONIN
     Dosage: 1 G, QD
     Route: 065
     Dates: start: 20160829
  5. MELATONIN [Concomitant]
     Active Substance: MELATONIN
     Dosage: 1 G, QD
     Route: 065
     Dates: start: 20161109
  6. RITALIN [Suspect]
     Active Substance: METHYLPHENIDATE HYDROCHLORIDE
     Dosage: 10 MG, BID
     Route: 065
     Dates: start: 20150205
  7. RITALIN [Suspect]
     Active Substance: METHYLPHENIDATE HYDROCHLORIDE
     Dosage: 10 MG, BID
     Route: 065
     Dates: start: 20150703, end: 201508
  8. RITALIN [Suspect]
     Active Substance: METHYLPHENIDATE HYDROCHLORIDE
     Dosage: 10 MG, BID
     Route: 065
     Dates: start: 20161109
  9. RITALIN [Suspect]
     Active Substance: METHYLPHENIDATE HYDROCHLORIDE
     Indication: AUTISM SPECTRUM DISORDER
     Dosage: 0.5 DF, BID (HALF TABLET OF 10 MG IN MORNING AND AT NOON)
     Route: 065
  10. RITALIN [Suspect]
     Active Substance: METHYLPHENIDATE HYDROCHLORIDE
     Dosage: 10 MG, BID
     Route: 065
     Dates: start: 20150618
  11. RITALIN [Suspect]
     Active Substance: METHYLPHENIDATE HYDROCHLORIDE
     Dosage: 10 MG, BID
     Route: 065
     Dates: start: 20160829
  12. RITALIN [Suspect]
     Active Substance: METHYLPHENIDATE HYDROCHLORIDE
     Dosage: 10 MG, BID
     Route: 065
     Dates: start: 20161212, end: 201701
  13. QUASYM L.P. [Suspect]
     Active Substance: METHYLPHENIDATE HYDROCHLORIDE
     Indication: ATTENTION DEFICIT HYPERACTIVITY DISORDER
     Dosage: 20 MG, QD (IN THE MORNING)
     Route: 065
     Dates: start: 20150305, end: 20150408
  14. MELATONIN [Concomitant]
     Active Substance: MELATONIN
     Dosage: 1 G, QD
     Route: 065
     Dates: start: 20160622
  15. MELATONIN [Concomitant]
     Active Substance: MELATONIN
     Dosage: 1 G, QD
     Route: 065
     Dates: start: 20161212
  16. RITALIN [Suspect]
     Active Substance: METHYLPHENIDATE HYDROCHLORIDE
     Dosage: 10 MG, BID
     Route: 065
     Dates: start: 20150408
  17. RITALIN [Suspect]
     Active Substance: METHYLPHENIDATE HYDROCHLORIDE
     Dosage: 10 MG, BID
     Route: 065
     Dates: start: 20160713
  18. QUASYM L.P. [Suspect]
     Active Substance: METHYLPHENIDATE HYDROCHLORIDE
     Indication: AUTISM SPECTRUM DISORDER
     Dosage: 20 MG, EVERY WEDNESDAY
     Route: 065
     Dates: start: 20150408, end: 201505
  19. RITALIN [Suspect]
     Active Substance: METHYLPHENIDATE HYDROCHLORIDE
     Indication: ATTENTION DEFICIT HYPERACTIVITY DISORDER
     Dosage: 0.5 DF, QD (HALF TABLET OF 10 MG IN MORNING)
     Route: 065
     Dates: start: 201501
  20. RITALIN [Suspect]
     Active Substance: METHYLPHENIDATE HYDROCHLORIDE
     Dosage: 10 MG, BID
     Route: 065
     Dates: start: 20150521
  21. RITALIN [Suspect]
     Active Substance: METHYLPHENIDATE HYDROCHLORIDE
     Dosage: 10 MG, BID
     Route: 065
     Dates: start: 20160125
  22. RITALIN [Suspect]
     Active Substance: METHYLPHENIDATE HYDROCHLORIDE
     Dosage: 10 MG, BID
     Route: 065
     Dates: start: 20160418
  23. RITALIN [Suspect]
     Active Substance: METHYLPHENIDATE HYDROCHLORIDE
     Dosage: 10 MG, BID
     Route: 065
     Dates: start: 20160502

REACTIONS (10)
  - Epistaxis [Unknown]
  - Chest pain [Unknown]
  - Decreased appetite [Unknown]
  - Insomnia [Unknown]
  - Tourette^s disorder [Unknown]
  - Anger [Unknown]
  - Condition aggravated [Unknown]
  - Drug ineffective [Unknown]
  - Tic [Unknown]
  - Intentional product use issue [Unknown]

NARRATIVE: CASE EVENT DATE: 20150112
